FAERS Safety Report 7666543-2 (Version None)
Quarter: 2011Q3

REPORT INFORMATION
  Report Type: 
  Country: None (occurrence: None)
  Receive Date: 20110806
  Receipt Date: 20110420
  Transmission Date: 20111222
  Serious: No
  Sender: FDA-Public Use
  Company Number: US-ABBOTT-11P-163-0720471-00

PATIENT
  Sex: Female
  Weight: 86.26 kg

DRUGS (2)
  1. ASPIRIN [Concomitant]
     Indication: PRODUCT USED FOR UNKNOWN INDICATION
  2. NIASPAN [Suspect]
     Indication: PRODUCT USED FOR UNKNOWN INDICATION
     Dates: start: 20110226, end: 20110412

REACTIONS (6)
  - MALAISE [None]
  - DRY SKIN [None]
  - SKIN BURNING SENSATION [None]
  - PARAESTHESIA [None]
  - FLUSHING [None]
  - FEELING HOT [None]
